FAERS Safety Report 7490221-6 (Version None)
Quarter: 2011Q2

REPORT INFORMATION
  Report Type: 
  Country: None (occurrence: None)
  Receive Date: 20110519
  Receipt Date: 20110314
  Transmission Date: 20111010
  Serious: No
  Sender: FDA-Public Use
  Company Number: US-TYCO HEALTHCARE/MALLINCKRODT-T201100592

PATIENT
  Sex: Male

DRUGS (4)
  1. DURAGESIC-100 [Concomitant]
     Dosage: UNK, EVERY TWO DAYS
     Dates: start: 20050101, end: 20110301
  2. FENTANYL-100 [Suspect]
     Indication: PAIN
     Dosage: 100 MCG/HR, EVERY 2 DAYS
     Dates: start: 20110303
  3. VICODIN HP [Concomitant]
     Dosage: TWO, QD
  4. MIRALAX [Concomitant]
     Dosage: UNK, QD

REACTIONS (2)
  - DRUG EFFECT INCREASED [None]
  - VOMITING [None]
